FAERS Safety Report 5912411-3 (Version None)
Quarter: 2008Q4

REPORT INFORMATION
  Report Type: 
  Country: None (occurrence: None)
  Receive Date: 20081008
  Receipt Date: 20080930
  Transmission Date: 20090506
  Serious: Yes (Hospitalization)
  Sender: FDA-Public Use
  Company Number: GR-WATSON-2008-05811

PATIENT
  Sex: Female

DRUGS (2)
  1. ESTRADIOL (WATSON LABORATORIES) [Suspect]
     Indication: HORMONE REPLACEMENT THERAPY
     Dosage: UNK
  2. NORETHINDRONE ACETATE [Suspect]
     Indication: HORMONE REPLACEMENT THERAPY
     Dosage: UNK

REACTIONS (1)
  - COLITIS ISCHAEMIC [None]
